FAERS Safety Report 23676510 (Version 1)
Quarter: 2024Q1

REPORT INFORMATION
  Report Type: Spontaneous
  Country: CN (occurrence: CN)
  Receive Date: 20240327
  Receipt Date: 20240327
  Transmission Date: 20240409
  Serious: Yes (Other)
  Sender: FDA-Public Use
  Company Number: None

PATIENT
  Age: 47 Year
  Sex: Female
  Weight: 40 kg

DRUGS (6)
  1. CYCLOPHOSPHAMIDE [Suspect]
     Active Substance: CYCLOPHOSPHAMIDE
     Indication: Breast cancer female
     Dosage: 0.6 G, QD, DILUTED WITH 100 ML OF 0.9% SODIUM CHLORIDE (FOURTH NEOADJUVANT CHEMOTHERAPY)
     Route: 041
     Dates: start: 20231227, end: 20231227
  2. SODIUM CHLORIDE [Suspect]
     Active Substance: SODIUM CHLORIDE
     Indication: Medication dilution
     Dosage: (0.9%) 100 ML, QD, USED TO DILUTE 0.6 G OF CYCLOPHOSPHAMIDE
     Route: 041
     Dates: start: 20231227, end: 20231227
  3. SODIUM CHLORIDE [Suspect]
     Active Substance: SODIUM CHLORIDE
     Dosage: (0.9%) 250 ML, QD, USED TO DILUTE 95 MG OF DOCETAXEL
     Route: 041
     Dates: start: 20231227, end: 20231227
  4. DEXTROSE [Suspect]
     Active Substance: DEXTROSE\DEXTROSE MONOHYDRATE
     Indication: Medication dilution
     Dosage: (5%) 100 ML, QD, USED TO DILUTE 110 MG OF EPIRUBICIN HYDROCHLORIDE
     Route: 041
     Dates: start: 20231227, end: 20231227
  5. DOCETAXEL [Suspect]
     Active Substance: DOCETAXEL\DOCETAXEL ANHYDROUS
     Indication: Breast cancer female
     Dosage: 95 MG, QD, DILUTED WITH 250 ML OF 0.9% SODIUM CHLORIDE (FOURTH NEOADJUVANT CHEMOTHERAPY)
     Route: 041
     Dates: start: 20231227, end: 20231227
  6. EPIRUBICIN HYDROCHLORIDE [Suspect]
     Active Substance: EPIRUBICIN HYDROCHLORIDE
     Indication: Breast cancer female
     Dosage: 110 MG, QD, DILUTED WITH 100 ML OF 5% GLUCOSE (FOURTH NEOADJUVANT CHEMOTHERAPY)
     Route: 041
     Dates: start: 20231227, end: 20231227

REACTIONS (1)
  - Myelosuppression [Recovering/Resolving]

NARRATIVE: CASE EVENT DATE: 20231231
